FAERS Safety Report 11634861 (Version 6)
Quarter: 2016Q1

REPORT INFORMATION
  Report Type: Report from Study
  Country: CA (occurrence: CA)
  Receive Date: 20151015
  Receipt Date: 20160209
  Transmission Date: 20160525
  Serious: Yes (Other)
  Sender: FDA-Public Use
  Company Number: CA-ABBVIE-15K-028-1480184-00

PATIENT
  Age: 75 Year
  Sex: Male
  Weight: 56.75 kg

DRUGS (3)
  1. HUMIRA [Suspect]
     Active Substance: ADALIMUMAB
     Indication: RHEUMATOID ARTHRITIS
     Route: 058
     Dates: start: 20150706, end: 20150915
  2. HUMIRA [Suspect]
     Active Substance: ADALIMUMAB
     Route: 058
     Dates: start: 201510
  3. METHOTREXATE [Concomitant]
     Active Substance: METHOTREXATE
     Indication: RHEUMATOID ARTHRITIS

REACTIONS (4)
  - Procedural complication [Recovering/Resolving]
  - Osteoarthritis [Unknown]
  - Mobility decreased [Unknown]
  - Injury associated with device [Recovering/Resolving]

NARRATIVE: CASE EVENT DATE: 20150928
